FAERS Safety Report 19008168 (Version 3)
Quarter: 2021Q2

REPORT INFORMATION
  Report Type: Report from Study
  Country: CO (occurrence: CO)
  Receive Date: 20210315
  Receipt Date: 20210522
  Transmission Date: 20210717
  Serious: Yes (Other)
  Sender: FDA-Public Use
  Company Number: NVSC2021CO057613

PATIENT
  Sex: Female
  Weight: 72 kg

DRUGS (1)
  1. TASIGNA [Suspect]
     Active Substance: NILOTINIB
     Indication: CHRONIC MYELOID LEUKAEMIA
     Dosage: 400 MG, Q12H (CAPSULE OF 200 MG, STARTED YEARS AND A HALF AGO)
     Route: 048

REACTIONS (6)
  - Neoplasm malignant [Unknown]
  - Illness [Unknown]
  - Application site cyst [Unknown]
  - Pain in extremity [Not Recovered/Not Resolved]
  - Fear [Unknown]
  - Gait disturbance [Unknown]
